FAERS Safety Report 5120338-2 (Version None)
Quarter: 2006Q4

REPORT INFORMATION
  Report Type: 
  Country: None (occurrence: None)
  Receive Date: 20061004
  Receipt Date: 20060921
  Transmission Date: 20070319
  Serious: Yes (Hospitalization)
  Sender: FDA-Public Use
  Company Number: FR-AVENTIS-200613269FR

PATIENT
  Age: 63 Year
  Sex: Male
  Weight: 63 kg

DRUGS (6)
  1. TAXOTERE [Suspect]
     Indication: ADENOCARCINOMA
     Route: 042
  2. TAXOTERE [Suspect]
     Indication: BRONCHIAL DISORDER
     Route: 042
  3. CISPLATIN [Suspect]
     Indication: ADENOCARCINOMA
     Route: 042
  4. CISPLATIN [Suspect]
     Indication: BRONCHIAL DISORDER
     Route: 042
  5. RADIOTHERAPY [Suspect]
     Indication: ADENOCARCINOMA
  6. RADIOTHERAPY [Suspect]
     Indication: BRONCHIAL DISORDER

REACTIONS (4)
  - CHOLECYSTITIS [None]
  - CHOLELITHIASIS [None]
  - HAEMANGIOMA OF LIVER [None]
  - HEPATIC CYST [None]
